FAERS Safety Report 13992501 (Version 1)
Quarter: 2017Q3

REPORT INFORMATION
  Report Type: Spontaneous
  Country: US (occurrence: US)
  Receive Date: 20170920
  Receipt Date: 20170920
  Transmission Date: 20171128
  Serious: No
  Sender: FDA-Public Use
  Company Number: US-RECKITT BENCKISER HEALTHCARE INT LIMITED-RB-90216-2017

PATIENT
  Age: 42 Year
  Sex: Male

DRUGS (3)
  1. MUCINEX MAXIMUM STRENGTH [Suspect]
     Active Substance: GUAIFENESIN
     Indication: VIRAL UPPER RESPIRATORY TRACT INFECTION
     Dosage: 1200 MG, UNK, TOOK ONE TABLET.
     Route: 065
     Dates: start: 20170525
  2. MUCINEX [Suspect]
     Active Substance: GUAIFENESIN
     Indication: VIRAL UPPER RESPIRATORY TRACT INFECTION
     Dosage: 20 ML, UNK
     Route: 065
     Dates: start: 20180525
  3. ANDROGEL [Concomitant]
     Active Substance: TESTOSTERONE
     Indication: PRODUCT USED FOR UNKNOWN INDICATION
     Dosage: UNK
     Route: 065

REACTIONS (1)
  - Cough [Unknown]
